FAERS Safety Report 6701845-5 (Version None)
Quarter: 2010Q2

REPORT INFORMATION
  Report Type: 
  Country: None (occurrence: None)
  Receive Date: 20100429
  Receipt Date: 20100422
  Transmission Date: 20101027
  Serious: Yes (Other)
  Sender: FDA-Public Use
  Company Number: DE-MILLENNIUM PHARMACEUTICALS, INC.-2010-02305

PATIENT

DRUGS (2)
  1. VELCADE [Suspect]
     Indication: MULTIPLE MYELOMA
     Dosage: UNK
     Route: 042
  2. LYRICA [Interacting]
     Indication: NEUROPATHY PERIPHERAL

REACTIONS (3)
  - DRUG INTERACTION [None]
  - LABORATORY TEST ABNORMAL [None]
  - NEUROPATHY PERIPHERAL [None]
